FAERS Safety Report 8325364-8 (Version None)
Quarter: 2012Q2

REPORT INFORMATION
  Report Type: 
  Country: None (occurrence: None)
  Receive Date: 20120501
  Receipt Date: 20100407
  Transmission Date: 20120825
  Serious: No
  Sender: FDA-Public Use
  Company Number: US-TEVA-2010002072

PATIENT
  Sex: Female
  Weight: 65.83 kg

DRUGS (14)
  1. PRISTIQ [Concomitant]
  2. TOPROL-XL [Concomitant]
  3. AVINZA [Concomitant]
  4. NUVIGIL [Suspect]
     Route: 048
     Dates: start: 20100405, end: 20100407
  5. PROTONIX [Concomitant]
  6. JANUVIA [Concomitant]
  7. DIOVAN HCT [Concomitant]
  8. WELCHOL [Concomitant]
  9. NUVIGIL [Suspect]
     Indication: NARCOLEPSY
     Route: 048
     Dates: start: 20100101
  10. OXYCODONE HCL [Concomitant]
  11. ADVAIR DISKUS 100/50 [Concomitant]
  12. ALBUTEROL [Concomitant]
  13. CRESTOR [Concomitant]
  14. SYNTHROID [Concomitant]

REACTIONS (13)
  - GLOSSODYNIA [None]
  - VISION BLURRED [None]
  - SWOLLEN TONGUE [None]
  - NAUSEA [None]
  - HEADACHE [None]
  - EYE PAIN [None]
  - PARAESTHESIA ORAL [None]
  - TONGUE DISORDER [None]
  - DIARRHOEA [None]
  - PAIN IN JAW [None]
  - EAR PAIN [None]
  - DRUG INEFFECTIVE [None]
  - VOMITING [None]
